FAERS Safety Report 12245004 (Version 1)
Quarter: 2016Q2

REPORT INFORMATION
  Report Type: Spontaneous
  Country: BR (occurrence: BR)
  Receive Date: 20160407
  Receipt Date: 20160407
  Transmission Date: 20160815
  Serious: Yes (Death, Hospitalization)
  Sender: FDA-Public Use
  Company Number: PHHY2016BR045434

PATIENT
  Age: 88 Year
  Sex: Male

DRUGS (3)
  1. LYRICA [Suspect]
     Active Substance: PREGABALIN
     Indication: TRIGEMINAL NERVE DISORDER
     Dosage: 75 MG, UNK
     Route: 065
     Dates: start: 2011
  2. TEGRETOL [Suspect]
     Active Substance: CARBAMAZEPINE
     Indication: TRIGEMINAL NEURALGIA
     Route: 065
  3. LYRICA [Suspect]
     Active Substance: PREGABALIN
     Dosage: 75 MG, BID
     Route: 065
     Dates: end: 20151128

REACTIONS (18)
  - Pneumonia [Fatal]
  - Lung infection [Unknown]
  - Cerebrovascular accident [Unknown]
  - Multiple organ dysfunction syndrome [Fatal]
  - Kidney infection [Unknown]
  - Speech disorder [Unknown]
  - Gastrointestinal disorder [Unknown]
  - Infection [Fatal]
  - Amnesia [Unknown]
  - Pain [Recovering/Resolving]
  - Chronic kidney disease [Fatal]
  - Mobility decreased [Unknown]
  - Memory impairment [Unknown]
  - Drug ineffective [Unknown]
  - Acute respiratory failure [Fatal]
  - Fall [Recovering/Resolving]
  - Femur fracture [Not Recovered/Not Resolved]
  - Asthenia [Unknown]

NARRATIVE: CASE EVENT DATE: 2011
